FAERS Safety Report 8865552 (Version 1)
Quarter: 2012Q4

REPORT INFORMATION
  Report Type: 
  Country: US (occurrence: US)
  Receive Date: 20121024
  Receipt Date: 20121024
  Transmission Date: 20130627
  Serious: No
  Sender: FDA-Public Use
  Company Number: US-AMGEN-USASP2012003559

PATIENT
  Age: 55 Year
  Sex: Female

DRUGS (1)
  1. ENBREL [Suspect]
     Indication: RHEUMATOID ARTHRITIS
     Dosage: 25 mg, 2 times/wk
     Dates: start: 20031003

REACTIONS (13)
  - Oedema peripheral [Recovered/Resolved]
  - Rheumatoid arthritis [Recovered/Resolved]
  - Stress [Not Recovered/Not Resolved]
  - Joint swelling [Not Recovered/Not Resolved]
  - Exostosis [Recovered/Resolved]
  - Muscle rupture [Unknown]
  - Bone disorder [Recovered/Resolved]
  - Meniscus injury [Unknown]
  - Therapeutic response decreased [Recovered/Resolved]
  - Arthropathy [Recovered/Resolved]
  - Arthralgia [Unknown]
  - Injury [Recovered/Resolved]
  - Gait disturbance [Recovered/Resolved]
